FAERS Safety Report 9380793 (Version 1)
Quarter: 2013Q3

REPORT INFORMATION
  Report Type: Spontaneous
  Country: AT (occurrence: AT)
  Receive Date: 20130702
  Receipt Date: 20130702
  Transmission Date: 20140515
  Serious: Yes (Life-Threatening, Hospitalization)
  Sender: FDA-Public Use
  Company Number: AT-ELI_LILLY_AND_COMPANY-EWC030334172

PATIENT
  Age: 43 Year
  Sex: Male

DRUGS (9)
  1. ZYPREXA [Suspect]
     Indication: BIPOLAR I DISORDER
     Dosage: 30 MG, QD
     Route: 048
     Dates: start: 20021123, end: 20021205
  2. NUBAIN [Suspect]
     Indication: BIPOLAR I DISORDER
     Dosage: 20 MG, EACH EVENING
     Route: 058
     Dates: start: 20021204
  3. SCOPOLAMINE [Suspect]
     Indication: BIPOLAR I DISORDER
     Dosage: 0.5 ML, EACH EVENING
     Route: 058
     Dates: start: 20021204
  4. QUILONORM RETARD [Concomitant]
     Indication: BIPOLAR I DISORDER
     Dosage: 900 MG, UNKNOWN
     Route: 048
     Dates: start: 20021123, end: 20021205
  5. RIVOTRIL [Concomitant]
     Indication: BIPOLAR I DISORDER
     Dosage: 16 MG, UNKNOWN
     Route: 048
     Dates: start: 20021122, end: 20021205
  6. AUGMENTIN [Concomitant]
     Indication: BIPOLAR I DISORDER
     Dosage: 3000 MG, UNKNOWN
     Route: 048
     Dates: start: 20021127
  7. PANTOLOC [Concomitant]
     Indication: BIPOLAR I DISORDER
     Dosage: 40 MG, UNKNOWN
     Route: 048
     Dates: start: 20021204
  8. AKINETON [Concomitant]
     Indication: BIPOLAR I DISORDER
     Dosage: 2 MG, UNKNOWN
     Route: 048
     Dates: start: 20021204, end: 20021205
  9. DEPAKINE [Concomitant]
     Indication: BIPOLAR I DISORDER
     Dosage: 2000 MG, UNKNOWN
     Route: 048
     Dates: start: 20021107

REACTIONS (4)
  - Cardiac arrest [Recovered/Resolved]
  - Cholecystitis [Recovered/Resolved]
  - Infection [Recovered/Resolved]
  - Prescribed overdose [Recovered/Resolved]
